FAERS Safety Report 11104499 (Version 5)
Quarter: 2015Q3

REPORT INFORMATION
  Report Type: Report from Study
  Country: LB (occurrence: LB)
  Receive Date: 20150511
  Receipt Date: 20150921
  Transmission Date: 20151125
  Serious: Yes (Hospitalization, Other)
  Sender: FDA-Public Use
  Company Number: PHHY2012LB054724

PATIENT
  Age: 28 Year
  Sex: Male
  Weight: 28 kg

DRUGS (2)
  1. ADVIL [Concomitant]
     Active Substance: IBUPROFEN
     Indication: PRODUCT USED FOR UNKNOWN INDICATION
     Dosage: UNK UNK, PRN (SOS)
     Route: 048
  2. GLIVEC [Suspect]
     Active Substance: IMATINIB MESYLATE
     Indication: CHRONIC MYELOID LEUKAEMIA
     Dosage: 400 MG, QD
     Route: 048
     Dates: start: 20100331

REACTIONS (17)
  - Influenza [Recovered/Resolved]
  - Abdominal pain [Recovered/Resolved]
  - Fatigue [Recovering/Resolving]
  - Pyrexia [Unknown]
  - Malaria [Recovered/Resolved]
  - Malaria [Not Recovered/Not Resolved]
  - Weight decreased [Unknown]
  - Abdominal distension [Unknown]
  - General physical health deterioration [Recovering/Resolving]
  - Wheezing [Unknown]
  - Malaria [Recovered/Resolved]
  - Nausea [Recovering/Resolving]
  - Typhoid fever [Recovered/Resolved]
  - Arthralgia [Not Recovered/Not Resolved]
  - Cough [Recovered/Resolved]
  - Typhoid fever [Not Recovered/Not Resolved]
  - Decreased appetite [Unknown]

NARRATIVE: CASE EVENT DATE: 20130321
